FAERS Safety Report 23290497 (Version 5)
Quarter: 2025Q1

REPORT INFORMATION
  Report Type: Spontaneous
  Country: US (occurrence: US)
  Receive Date: 20231213
  Receipt Date: 20250327
  Transmission Date: 20250409
  Serious: No
  Sender: BIOGEN
  Company Number: US-BIOGEN-2023BI01185366

PATIENT
  Sex: Female

DRUGS (3)
  1. TYSABRI [Suspect]
     Active Substance: NATALIZUMAB
     Indication: Multiple sclerosis
     Route: 050
     Dates: start: 20080313
  2. TYSABRI [Suspect]
     Active Substance: NATALIZUMAB
     Route: 050
  3. PENICILLIN [Concomitant]
     Active Substance: PENICILLIN
     Route: 050

REACTIONS (14)
  - Prescribed underdose [Unknown]
  - Product dose omission issue [Unknown]
  - Frustration tolerance decreased [Not Recovered/Not Resolved]
  - Infection [Not Recovered/Not Resolved]
  - Illness [Unknown]
  - Pain of skin [Unknown]
  - Feeling abnormal [Unknown]
  - Malaise [Unknown]
  - COVID-19 [Recovered/Resolved]
  - Withdrawal syndrome [Recovered/Resolved]
  - Anxiety [Not Recovered/Not Resolved]
  - Depression [Unknown]
  - Arthralgia [Unknown]
  - Influenza [Recovered/Resolved]

NARRATIVE: CASE EVENT DATE: 20190101
